FAERS Safety Report 8542347-3 (Version None)
Quarter: 2012Q3

REPORT INFORMATION
  Report Type: 
  Country: None (occurrence: None)
  Receive Date: 20120726
  Receipt Date: 20111021
  Transmission Date: 20120928
  Serious: Yes (Hospitalization)
  Sender: FDA-Public Use
  Company Number: UM-ASTRAZENECA-2011SE63730

PATIENT
  Age: 33 Year
  Sex: Female
  Weight: 44 kg

DRUGS (4)
  1. SEROQUEL [Suspect]
     Indication: POST-TRAUMATIC STRESS DISORDER
     Route: 048
     Dates: start: 20110902, end: 20110930
  2. CONAZEPAM [Concomitant]
     Dosage: EVERY DAY
  3. SEROQUEL [Suspect]
     Indication: MAJOR DEPRESSION
     Route: 048
     Dates: start: 20110902, end: 20110930
  4. SEROQUEL [Suspect]
     Indication: ANXIETY
     Route: 048
     Dates: start: 20110902, end: 20110930

REACTIONS (4)
  - DIARRHOEA [None]
  - INSOMNIA [None]
  - THERAPEUTIC RESPONSE UNEXPECTED [None]
  - FATIGUE [None]
